FAERS Safety Report 7632755-7 (Version None)
Quarter: 2011Q3

REPORT INFORMATION
  Report Type: 
  Country: None (occurrence: None)
  Receive Date: 20110725
  Receipt Date: 20101227
  Transmission Date: 20111222
  Serious: No
  Sender: FDA-Public Use
  Company Number: US-BRISTOL-MYERS SQUIBB COMPANY-15461411

PATIENT
  Age: 48 Year
  Sex: Female

DRUGS (4)
  1. COUMADIN [Suspect]
     Dates: start: 20100801
  2. ASPIRIN [Concomitant]
     Dosage: ASPIRIN TAKEN CONCURRENTLY WITH WARFARIN SODIUM IN THE MORNING
  3. LOVENOX [Concomitant]
  4. CELEBREX [Suspect]
     Dates: end: 20101001

REACTIONS (3)
  - BACK PAIN [None]
  - CHROMATURIA [None]
  - RENAL PAIN [None]
